FAERS Safety Report 4471424-1 (Version None)
Quarter: 2004Q4

REPORT INFORMATION
  Report Type: 
  Country: None (occurrence: None)
  Receive Date: 20041007
  Receipt Date: 20041007
  Transmission Date: 20050328
  Serious: Yes (Other)
  Sender: FDA-Public Use
  Company Number: None

PATIENT
  Age: 51 Year
  Sex: Female
  Weight: 106.5953 kg

DRUGS (2)
  1. PAXIL CR [Suspect]
     Indication: ANXIETY
     Dosage: 1 PILL A DAY
     Dates: start: 20040401, end: 20040815
  2. PAXIL CR [Suspect]
     Indication: STRESS SYMPTOMS
     Dosage: 1 PILL A DAY
     Dates: start: 20040401, end: 20040815

REACTIONS (1)
  - SUICIDAL IDEATION [None]
